FAERS Safety Report 16141188 (Version 1)
Quarter: 2019Q2

REPORT INFORMATION
  Report Type: Spontaneous
  Country: US (occurrence: US)
  Receive Date: 20190330
  Receipt Date: 20190330
  Transmission Date: 20190711
  Serious: No
  Sender: FDA-Public Use
  Company Number: None

PATIENT
  Age: 23 Year
  Sex: Female
  Weight: 108.45 kg

DRUGS (1)
  1. FLUCONAZOLE TABLET USP [Suspect]
     Active Substance: FLUCONAZOLE
     Indication: VULVOVAGINAL MYCOTIC INFECTION
     Dosage: ?          QUANTITY:1 TABLET(S);?
     Route: 048
     Dates: start: 20190329, end: 20190329

REACTIONS (2)
  - Accidental exposure to product [None]
  - Epistaxis [None]

NARRATIVE: CASE EVENT DATE: 20190330
